FAERS Safety Report 5611938-1 (Version None)
Quarter: 2008Q1

REPORT INFORMATION
  Report Type: 
  Country: None (occurrence: None)
  Receive Date: 20080130
  Receipt Date: 20080130
  Transmission Date: 20080703
  Serious: Yes (Hospitalization)
  Sender: FDA-Public Use
  Company Number: None

PATIENT
  Age: 47 Year
  Sex: Male

DRUGS (1)
  1. TRAZODONE HCL [Suspect]
     Indication: INSOMNIA
     Dosage: 100MG EVERY DAY PO
     Route: 048
     Dates: start: 20071203, end: 20071203

REACTIONS (5)
  - NOCTURIA [None]
  - PAIN [None]
  - PRIAPISM [None]
  - PROSTATIC SPECIFIC ANTIGEN INCREASED [None]
  - URINARY HESITATION [None]
